FAERS Safety Report 16639902 (Version 1)
Quarter: 2019Q3

REPORT INFORMATION
  Report Type: Spontaneous
  Country: CA (occurrence: CA)
  Receive Date: 20190727
  Receipt Date: 20190727
  Transmission Date: 20191004
  Serious: Yes (Hospitalization, Other)
  Sender: FDA-Public Use
  Company Number: CA-ACCORD-149156

PATIENT
  Age: 3 Year
  Sex: Male

DRUGS (1)
  1. METHOTREXATE. [Suspect]
     Active Substance: METHOTREXATE
     Indication: B PRECURSOR TYPE ACUTE LEUKAEMIA
     Dosage: STARTING WITH 100 MG/M2, INCREASING THE DOSE BY 50 MG

REACTIONS (2)
  - Cytomegalovirus infection [Recovered/Resolved]
  - Gastric mucosal hypertrophy [Recovering/Resolving]
